FAERS Safety Report 9689372 (Version 4)
Quarter: 2013Q4

REPORT INFORMATION
  Report Type: Spontaneous
  Country: IT (occurrence: IT)
  Receive Date: 20131114
  Receipt Date: 20131226
  Transmission Date: 20140711
  Serious: Yes (Hospitalization)
  Sender: FDA-Public Use
  Company Number: IT-B.I. PHARMACEUTICALS,INC./RIDGEFIELD-2013-BI-36599IT

PATIENT
  Age: 67 Year
  Sex: Male

DRUGS (9)
  1. TAMSULOSIN HYDROCHLORIDE [Suspect]
     Indication: PROSTATE CANCER
     Dosage: 0.4 MG
     Route: 048
     Dates: start: 20080101, end: 20131005
  2. CITALOPRAM [Suspect]
     Indication: DEPRESSION
     Route: 048
     Dates: start: 20080101, end: 20131005
  3. RIVOTRIL [Concomitant]
     Dosage: 5 DROPS
     Route: 048
  4. RANIDIL [Concomitant]
     Route: 048
  5. IDROPLURIVIT [Concomitant]
     Route: 048
  6. AMIODARONE HYDROCHLORIDE [Concomitant]
     Route: 048
  7. CLONAZEPAM [Concomitant]
     Dosage: 2.5 MG/ML
  8. RANITIDINE HYDROCHLORIDE [Concomitant]
     Dosage: 2.5 MG/ML
  9. MULTIVITAMIN COMPLEX [Concomitant]
     Route: 048

REACTIONS (1)
  - Hyponatraemia [Recovered/Resolved]
